FAERS Safety Report 5777403-6 (Version None)
Quarter: 2008Q2

REPORT INFORMATION
  Report Type: 
  Country: None (occurrence: None)
  Receive Date: 20080618
  Receipt Date: 20080610
  Transmission Date: 20081010
  Serious: Yes (Other)
  Sender: FDA-Public Use
  Company Number: CA-ALLERGAN-200601032

PATIENT
  Sex: Female
  Weight: 77 kg

DRUGS (6)
  1. BOTOX [Suspect]
     Indication: NECK PAIN
     Dosage: 160UNITS, PRN
     Route: 030
     Dates: start: 20060120
  2. BOTOX [Suspect]
     Indication: MUSCULOSKELETAL PAIN
  3. NAPROXEN [Concomitant]
     Indication: DRUG USE FOR UNKNOWN INDICATION
     Dosage: 500MG, BID
     Route: 048
  4. PERCOCET [Concomitant]
     Indication: DRUG USE FOR UNKNOWN INDICATION
     Dosage: 1-2 TABS Q4H PRN
     Route: 048
  5. AMITRIPTYLINE HCL [Concomitant]
     Indication: DRUG USE FOR UNKNOWN INDICATION
     Dosage: 10MG, QHS
     Route: 048
  6. MAXALT [Concomitant]
     Indication: MIGRAINE
     Dosage: 10MG, PRN
     Route: 048

REACTIONS (13)
  - BRACHIAL PLEXOPATHY [None]
  - FATIGUE [None]
  - HYPOAESTHESIA [None]
  - JOINT RANGE OF MOTION DECREASED [None]
  - LYMPHOCYTOSIS [None]
  - MUSCULAR WEAKNESS [None]
  - MUSCULOSKELETAL DISCOMFORT [None]
  - MUSCULOSKELETAL PAIN [None]
  - NAUSEA [None]
  - NECK PAIN [None]
  - PARAESTHESIA [None]
  - SENSORY DISTURBANCE [None]
  - VOMITING [None]
